FAERS Safety Report 4766812-X (Version None)
Quarter: 2005Q3

REPORT INFORMATION
  Report Type: 
  Country: None (occurrence: None)
  Receive Date: 20050912
  Receipt Date: 20050830
  Transmission Date: 20060218
  Serious: Yes (Other)
  Sender: FDA-Public Use
  Company Number: 2005-01715

PATIENT
  Age: 51 Year
  Sex: Male
  Weight: 95.2 kg

DRUGS (13)
  1. CONDYLOX [Suspect]
     Indication: TONGUE BLACK HAIRY
     Dosage: ^SMALL AMOUNT/DAB ON AREA^, BUCCAL
     Route: 002
     Dates: start: 20050401, end: 20050401
  2. PODOFILOX [Suspect]
     Indication: TONGUE BLACK HAIRY
     Dosage: SWAB TONGUE EVERY 2ND DAY,
     Dates: start: 20050401, end: 20050501
  3. VALIUM [Suspect]
     Dosage: 5 MG, 1-2 TAB Q6H PRN, ORAL
     Route: 048
  4. FLEXERIL [Suspect]
     Dosage: 1 TABLET, Q6H PRN, ORAL
     Route: 048
  5. DURAGESIC-100 [Suspect]
     Indication: ANALGESIC EFFECT
     Dosage: 75 MCG, 2 EVERY 3 DAYS, TRANSDERMAL
     Route: 062
  6. ACE INHIBITOR [Concomitant]
  7. ZIAC [Concomitant]
  8. WELLBUTRIN [Concomitant]
  9. PERCOCET [Concomitant]
  10. PROZAC [Concomitant]
  11. LIPITOR [Concomitant]
  12. ZESTRIL [Concomitant]
  13. TRAZODONE (TRAZODONE) [Concomitant]

REACTIONS (14)
  - AMNESIA [None]
  - COORDINATION ABNORMAL [None]
  - DRUG TOXICITY [None]
  - DYSARTHRIA [None]
  - FEELING DRUNK [None]
  - HEPATIC NEOPLASM [None]
  - JUDGEMENT IMPAIRED [None]
  - LUNG NEOPLASM [None]
  - MENTAL STATUS CHANGES [None]
  - MORBID THOUGHTS [None]
  - OFF LABEL USE [None]
  - RENAL CYST [None]
  - RENAL FAILURE [None]
  - RENAL MASS [None]
